FAERS Safety Report 7814850-2 (Version None)
Quarter: 2011Q4

REPORT INFORMATION
  Report Type: 
  Country: None (occurrence: None)
  Receive Date: 20111014
  Receipt Date: 20110930
  Transmission Date: 20120403
  Serious: Yes (Disabling, Other)
  Sender: FDA-Public Use
  Company Number: US-ROCHE-798499

PATIENT
  Sex: Male
  Weight: 104.3 kg

DRUGS (5)
  1. PROPARACAINE HCL [Concomitant]
  2. POVIDONE IODINE [Concomitant]
  3. AVASTIN [Suspect]
     Indication: MACULAR OEDEMA
     Dosage: DOSE 0.15 ML. INJECTION
     Route: 050
     Dates: start: 20110812, end: 20110815
  4. DROXAINE [Concomitant]
  5. OFLOXACIN [Concomitant]
     Route: 047

REACTIONS (5)
  - BLINDNESS [None]
  - EYE INFLAMMATION [None]
  - PRODUCT QUALITY ISSUE [None]
  - VISION BLURRED [None]
  - EYE PAIN [None]
